FAERS Safety Report 25612899 (Version 1)
Quarter: 2025Q3

REPORT INFORMATION
  Report Type: Spontaneous
  Country: US (occurrence: None)
  Receive Date: 20250726
  Receipt Date: 20250726
  Transmission Date: 20251020
  Serious: Yes (Life-Threatening, Disabling)
  Sender: FDA-CTU
  Company Number: None

PATIENT
  Age: 25 Year
  Sex: Female
  Weight: 42 kg

DRUGS (6)
  1. MONTELUKAST [Suspect]
     Active Substance: MONTELUKAST
     Indication: Asthma
     Dates: start: 20240129
  2. MONTELUKAST [Suspect]
     Active Substance: MONTELUKAST
     Indication: Hypersensitivity
  3. TRAZODONE HYDROCHLORIDE [Suspect]
     Active Substance: TRAZODONE HYDROCHLORIDE
  4. SYMBICORT [Suspect]
     Active Substance: BUDESONIDE\FORMOTEROL FUMARATE DIHYDRATE
  5. BILASTINE [Suspect]
     Active Substance: BILASTINE
  6. ZOLOFT [Suspect]
     Active Substance: SERTRALINE HYDROCHLORIDE

REACTIONS (18)
  - Malaise [None]
  - Drug intolerance [None]
  - Insomnia [None]
  - Depression [None]
  - Derealisation [None]
  - Suicidal ideation [None]
  - Heart rate increased [None]
  - Hypersomnia [None]
  - Withdrawal syndrome [None]
  - Headache [None]
  - Vision blurred [None]
  - Disorientation [None]
  - Tinnitus [None]
  - Crying [None]
  - Agoraphobia [None]
  - Memory impairment [None]
  - Cognitive disorder [None]
  - Brain fog [None]

NARRATIVE: CASE EVENT DATE: 20240731
